FAERS Safety Report 8939398 (Version 2)
Quarter: 2013Q1

REPORT INFORMATION
  Report Type: Spontaneous
  Country: IT (occurrence: IT)
  Receive Date: 20121203
  Receipt Date: 20130123
  Transmission Date: 20140127
  Serious: Yes (Hospitalization)
  Sender: FDA-Public Use
  Company Number: IT-BAYER-2012-122712

PATIENT
  Age: 37 Year
  Sex: Male

DRUGS (4)
  1. CIPROXIN [Suspect]
     Dosage: DAILY DOSE 500 MG
     Route: 048
     Dates: start: 20121008, end: 20121021
  2. OKI [Suspect]
     Indication: HEADACHE
     Dosage: DAILY DOSE 160 MG
     Route: 048
     Dates: start: 20121024, end: 20121024
  3. HERBAL PREPARATION [Concomitant]
     Dosage: UNK
     Dates: end: 20121030
  4. NUTRITIONAL SUPPLEMENT [Concomitant]
     Dosage: UNK
     Dates: end: 20121030

REACTIONS (1)
  - Rash papular [Recovering/Resolving]
